FAERS Safety Report 7345374-7 (Version None)
Quarter: 2011Q1

REPORT INFORMATION
  Report Type: 
  Country: None (occurrence: None)
  Receive Date: 20110310
  Receipt Date: 20110225
  Transmission Date: 20110831
  Serious: Yes (Other)
  Sender: FDA-Public Use
  Company Number: PHHY2010US78040

PATIENT
  Sex: Female
  Weight: 116 kg

DRUGS (8)
  1. VITAMIN B COMPLEX CAP [Concomitant]
  2. PREDNISONE [Concomitant]
  3. KEPPRA [Concomitant]
  4. PRILOSEC [Concomitant]
  5. EXJADE [Suspect]
     Indication: SICKLE CELL ANAEMIA
     Dosage: 1000 MG, DAILY
     Route: 048
     Dates: start: 20080201
  6. ZONEGRAN [Concomitant]
  7. ASCORBIC ACID [Concomitant]
  8. TRILEPTAL [Concomitant]

REACTIONS (6)
  - LIVER SARCOIDOSIS [None]
  - MUSCULOSKELETAL DISCOMFORT [None]
  - ABDOMINAL PAIN UPPER [None]
  - HAEMATOCHEZIA [None]
  - HEPATIC CYST [None]
  - NAUSEA [None]
